FAERS Safety Report 10599252 (Version 2)
Quarter: 2014Q4

REPORT INFORMATION
  Report Type: Spontaneous
  Country: PL (occurrence: PL)
  Receive Date: 20141121
  Receipt Date: 20141128
  Transmission Date: 20150529
  Serious: Yes (Other)
  Sender: FDA-Public Use
  Company Number: PL-009507513-1411POL007633

PATIENT
  Sex: Female

DRUGS (17)
  1. FLEGAMIN [Suspect]
     Active Substance: BROMHEXINE HYDROCHLORIDE
     Dosage: UNK
     Dates: start: 20131016
  2. UROTRIM [Suspect]
     Active Substance: TRIMETHOPRIM
     Dosage: UNK
     Dates: start: 20131105, end: 20131117
  3. ENARENAL [Suspect]
     Active Substance: ENALAPRIL
     Dosage: UNK
  4. FUROSEMIDE. [Concomitant]
     Active Substance: FUROSEMIDE
     Dosage: UNK
  5. KETREL (QUETIAPINE FUMARATE) [Suspect]
     Active Substance: QUETIAPINE FUMARATE
     Dosage: FIRST WITHDDRAWAL OF THE DRUG:07-NOV-2013 00:00
     Dates: end: 20131107
  6. LACTULOSE. [Suspect]
     Active Substance: LACTULOSE
     Dosage: UNK, LACTULOZA
  7. POTASSIUM (UNSPECIFIED) [Concomitant]
     Active Substance: POTASSIUM
     Dosage: UNK
  8. TRIMESAN [Suspect]
     Active Substance: TRIMETHOPRIM
     Dosage: UNK
  9. MIRTAZAPINE. [Suspect]
     Active Substance: MIRTAZAPINE
     Dosage: UNK
     Route: 048
     Dates: start: 20131113, end: 20131126
  10. HYDROXYZINE HYDROCHLORIDE. [Suspect]
     Active Substance: HYDROXYZINE HYDROCHLORIDE
     Dosage: HYDROXYZYNA
  11. BISOCARD [Suspect]
     Active Substance: BISOPROLOL
  12. VAXIGRIP [Suspect]
     Active Substance: INFLUENZA VIRUS VACCINE
     Dosage: UNK
     Dates: start: 20131010
  13. HYGROTON [Suspect]
     Active Substance: CHLORTHALIDONE
     Dosage: UNK
     Dates: start: 20131028, end: 20131101
  14. FERRUM LEK (IRON DEXTRAN) [Suspect]
     Active Substance: IRON DEXTRAN
     Dosage: UNK
     Dates: start: 20131031, end: 20131111
  15. ASCORBIC ACID. [Concomitant]
     Active Substance: ASCORBIC ACID
     Dosage: UNK
  16. KETREL (QUETIAPINE FUMARATE) [Suspect]
     Active Substance: QUETIAPINE FUMARATE
     Dosage: UNK
     Dates: start: 20131119, end: 20131120
  17. DEXAVEN [Suspect]
     Active Substance: DEXAMETHASONE
     Dosage: UNK
     Dates: start: 20131107, end: 20131110

REACTIONS (20)
  - Dysphagia [Unknown]
  - Altered state of consciousness [Unknown]
  - Decreased appetite [Unknown]
  - Gastritis [Unknown]
  - Somnolence [Unknown]
  - Rash [Unknown]
  - Blood disorder [Unknown]
  - Cachexia [Unknown]
  - Asthenia [Unknown]
  - Immune system disorder [Unknown]
  - Productive cough [Unknown]
  - Hyperhidrosis [Unknown]
  - Impaired healing [Unknown]
  - Speech disorder [Unknown]
  - Dyspnoea [Unknown]
  - Nausea [Unknown]
  - Decubitus ulcer [Unknown]
  - Erythema [Unknown]
  - Petechiae [Unknown]
  - Pyrexia [Unknown]
